FAERS Safety Report 26170643 (Version 2)
Quarter: 2025Q4

REPORT INFORMATION
  Report Type: Spontaneous
  Country: US (occurrence: US)
  Receive Date: 20251217
  Receipt Date: 20251231
  Transmission Date: 20260118
  Serious: No
  Sender: PFIZER
  Company Number: US-PFIZER INC-202500241331

PATIENT
  Age: 47 Year
  Sex: Female

DRUGS (1)
  1. CIBINQO [Suspect]
     Active Substance: ABROCITINIB
     Dosage: 100 MG

REACTIONS (1)
  - Drug ineffective [Unknown]
